FAERS Safety Report 10521705 (Version 1)
Quarter: 2014Q4

REPORT INFORMATION
  Report Type: Spontaneous
  Country: IE (occurrence: IE)
  Receive Date: 20141016
  Receipt Date: 20141016
  Transmission Date: 20150528
  Serious: Yes (Death)
  Sender: FDA-Public Use
  Company Number: IE-OTSUKA-US-2014-13127

PATIENT

DRUGS (1)
  1. DACOGEN [Suspect]
     Active Substance: DECITABINE
     Indication: ACUTE MYELOID LEUKAEMIA
     Dosage: UNK, UNKNOWN, APPROXIMATELY 3 CYCLES
     Route: 042

REACTIONS (1)
  - Acute myeloid leukaemia [Fatal]
